FAERS Safety Report 10454294 (Version 3)
Quarter: 2015Q1

REPORT INFORMATION
  Report Type: Report from Study
  Country: JP (occurrence: JP)
  Receive Date: 20140915
  Receipt Date: 20150218
  Transmission Date: 20150720
  Serious: Yes (Hospitalization, Other)
  Sender: FDA-Public Use
  Company Number: PHHY2013JP111615

PATIENT
  Age: 29 Year
  Sex: Male

DRUGS (46)
  1. CLOZARIL [Suspect]
     Active Substance: CLOZAPINE
     Dosage: 200 MG, QD
     Route: 048
     Dates: start: 20120725, end: 20120801
  2. SILECE [Concomitant]
     Active Substance: FLUNITRAZEPAM
     Indication: SCHIZOPHRENIA, PARANOID TYPE
     Dosage: 4 MG, UNK
     Route: 048
     Dates: start: 20101201, end: 20120815
  3. LEXOTAN [Concomitant]
     Active Substance: BROMAZEPAM
     Dosage: 5 MG, UNK
     Route: 048
     Dates: start: 20120721, end: 20120723
  4. CLOZARIL [Suspect]
     Active Substance: CLOZAPINE
     Dosage: 300 MG, QD
     Route: 048
     Dates: start: 20120802, end: 20120829
  5. AMOXAN [Concomitant]
     Active Substance: AMOXAPINE
     Dosage: 100 MG, UNK
     Route: 048
     Dates: start: 20121115, end: 20121121
  6. LORAMET [Concomitant]
     Active Substance: LORMETAZEPAM
     Indication: SCHIZOPHRENIA, PARANOID TYPE
     Dosage: 2 MG, UNK
     Route: 048
     Dates: start: 20120706, end: 20120707
  7. LEXOTAN [Concomitant]
     Active Substance: BROMAZEPAM
     Indication: SCHIZOPHRENIA, PARANOID TYPE
     Dosage: 5 MG, UNK
     Route: 048
     Dates: start: 20120707, end: 20120707
  8. LEXOTAN [Concomitant]
     Active Substance: BROMAZEPAM
     Dosage: 5 MG, UNK
     Route: 048
     Dates: start: 20120822, end: 20120913
  9. LEXOTAN [Concomitant]
     Active Substance: BROMAZEPAM
     Dosage: 5 MG, UNK
     Route: 048
     Dates: start: 20130417
  10. CLOZARIL [Suspect]
     Active Substance: CLOZAPINE
     Dosage: 50 MG, QD
     Route: 048
     Dates: start: 20120709, end: 20120711
  11. CLOZARIL [Suspect]
     Active Substance: CLOZAPINE
     Dosage: 175 MG, QD
     Route: 048
     Dates: start: 20120722, end: 20120724
  12. SENNOSIDE [Concomitant]
     Active Substance: SENNOSIDES
     Indication: PRODUCT USED FOR UNKNOWN INDICATION
     Dosage: 24 MG, UNK
     Route: 048
     Dates: start: 20120313, end: 20140205
  13. AMOXAN [Concomitant]
     Active Substance: AMOXAPINE
     Dosage: 150 MG, UNK
     Route: 048
     Dates: start: 20121206, end: 20140514
  14. BENZALIN [Concomitant]
     Active Substance: NITRAZEPAM
     Indication: SCHIZOPHRENIA, PARANOID TYPE
     Dosage: 5 MG, UNK
     Route: 048
     Dates: start: 20120816, end: 20130206
  15. LORAMET [Concomitant]
     Active Substance: LORMETAZEPAM
     Dosage: 2 MG, UNK
     Route: 048
     Dates: start: 20120724, end: 20120724
  16. REFLEX [Concomitant]
     Active Substance: MIRTAZAPINE
     Dosage: 45 MG, UNK
     Route: 048
     Dates: start: 20140710
  17. CLOZARIL [Suspect]
     Active Substance: CLOZAPINE
     Indication: SCHIZOPHRENIA, PARANOID TYPE
     Dosage: 12.5 MG, QD
     Route: 048
     Dates: start: 20120705, end: 20120705
  18. CLOZARIL [Suspect]
     Active Substance: CLOZAPINE
     Dosage: 150 MG, QD
     Route: 048
     Dates: start: 20120719, end: 20120721
  19. LORAMET [Concomitant]
     Active Substance: LORMETAZEPAM
     Dosage: 2 MG, UNK
     Route: 048
     Dates: start: 20120713, end: 20120715
  20. LORAMET [Concomitant]
     Active Substance: LORMETAZEPAM
     Dosage: 2 MG, UNK
     Route: 048
     Dates: start: 20120721, end: 20120722
  21. CLOZARIL [Suspect]
     Active Substance: CLOZAPINE
     Dosage: 100 MG, QD
     Route: 048
     Dates: start: 20120714, end: 20120715
  22. SEROQUEL [Concomitant]
     Active Substance: QUETIAPINE FUMARATE
     Indication: SCHIZOPHRENIA, PARANOID TYPE
     Dosage: 100 MG, UNK
     Route: 048
     Dates: start: 20120705
  23. HIRNAMIN [Concomitant]
     Active Substance: PHENOTHIAZINE
     Dosage: 50 MG, UNK
     Route: 048
     Dates: start: 20120720, end: 20120720
  24. SILECE [Concomitant]
     Active Substance: FLUNITRAZEPAM
     Dosage: 2 MG, UNK
     Route: 048
     Dates: start: 20120816, end: 20120913
  25. AMOXAN [Concomitant]
     Active Substance: AMOXAPINE
     Indication: SCHIZOPHRENIA, PARANOID TYPE
     Dosage: 75 MG, UNK
     Route: 048
     Dates: start: 20111205, end: 20121114
  26. GOODMIN [Concomitant]
     Active Substance: BROTIZOLAM
     Indication: SCHIZOPHRENIA, PARANOID TYPE
     Dosage: 0.5 MG, UNK
     Route: 048
     Dates: start: 20130410, end: 20140514
  27. LEXAPRO [Concomitant]
     Active Substance: ESCITALOPRAM OXALATE
     Indication: SCHIZOPHRENIA, PARANOID TYPE
     Dosage: 10 MG, UNK
     Route: 048
     Dates: start: 20130801, end: 20140814
  28. CLOZARIL [Suspect]
     Active Substance: CLOZAPINE
     Dosage: 125 MG, QD
     Route: 048
     Dates: start: 20120716, end: 20120718
  29. CLOZARIL [Suspect]
     Active Substance: CLOZAPINE
     Dosage: 500 MG, QD
     Route: 048
     Dates: start: 20120903, end: 20121004
  30. SEROQUEL [Concomitant]
     Active Substance: QUETIAPINE FUMARATE
     Dosage: 25 MG, UNK
     Route: 048
     Dates: end: 20120905
  31. HIRNAMIN [Concomitant]
     Active Substance: PHENOTHIAZINE
     Dosage: 75 MG, UNK
     Route: 048
     Dates: start: 20120726, end: 20120726
  32. AMOXAN [Concomitant]
     Active Substance: AMOXAPINE
     Dosage: 125 MG, UNK
     Route: 048
     Dates: start: 20121122, end: 20121205
  33. AMOXAN [Concomitant]
     Active Substance: AMOXAPINE
     Dosage: 75 MG, UNK
     Route: 048
     Dates: start: 20140515
  34. LIMAS [Concomitant]
     Active Substance: LITHIUM CARBONATE
     Indication: SCHIZOPHRENIA, PARANOID TYPE
     Dosage: 600 MG, UNK
     Route: 048
     Dates: start: 20120310, end: 20130212
  35. REFLEX [Concomitant]
     Active Substance: MIRTAZAPINE
     Indication: SCHIZOPHRENIA, PARANOID TYPE
     Dosage: 30 MG, UNK
     Route: 048
     Dates: start: 20130606, end: 20140709
  36. CLOZARIL [Suspect]
     Active Substance: CLOZAPINE
     Dosage: 25 MG, QD
     Route: 048
     Dates: start: 20120706, end: 20120708
  37. CLOZARIL [Suspect]
     Active Substance: CLOZAPINE
     Dosage: 600 MG, QD
     Route: 048
     Dates: start: 20121005
  38. HIRNAMIN [Concomitant]
     Active Substance: PHENOTHIAZINE
     Dosage: 25 MG, UNK
     Route: 048
     Dates: start: 20120718, end: 20120718
  39. SILECE [Concomitant]
     Active Substance: FLUNITRAZEPAM
     Dosage: 1 MG, UNK
     Route: 048
     Dates: start: 20120914, end: 20140430
  40. SENNOSIDE [Concomitant]
     Active Substance: SENNOSIDES
     Dosage: 36 MG, UNK
     Route: 048
     Dates: start: 20140206
  41. LIMAS [Concomitant]
     Active Substance: LITHIUM CARBONATE
     Dosage: 200 MG, UNK
     Route: 048
     Dates: start: 20130213, end: 20130213
  42. LEXOTAN [Concomitant]
     Active Substance: BROMAZEPAM
     Dosage: 5 MG, UNK
     Route: 048
     Dates: start: 20120715, end: 20120715
  43. CLOZARIL [Suspect]
     Active Substance: CLOZAPINE
     Dosage: 75 MG, QD
     Route: 048
     Dates: start: 20120712, end: 20120713
  44. CLOZARIL [Suspect]
     Active Substance: CLOZAPINE
     Dosage: 400 MG, QD
     Route: 048
     Dates: start: 20120830, end: 20120902
  45. HIRNAMIN [Concomitant]
     Active Substance: PHENOTHIAZINE
     Indication: SCHIZOPHRENIA, PARANOID TYPE
     Dosage: 50 MG, UNK
     Route: 048
     Dates: start: 20120706, end: 20120706
  46. ROZEREM [Concomitant]
     Active Substance: RAMELTEON
     Indication: SCHIZOPHRENIA, PARANOID TYPE
     Dosage: 8 MG, UNK
     Route: 048
     Dates: start: 20120211, end: 20130703

REACTIONS (12)
  - White blood cell count increased [Unknown]
  - Skin irritation [Recovered/Resolved]
  - Eczema [Recovering/Resolving]
  - Circulatory collapse [Unknown]
  - Subdural haematoma [Recovered/Resolved]
  - Heart rate increased [Unknown]
  - Contusion [Unknown]
  - Eosinophil count increased [Unknown]
  - Skull fracture [Unknown]
  - Loss of consciousness [Unknown]
  - Clonic convulsion [Recovered/Resolved]
  - Hyperhidrosis [Unknown]

NARRATIVE: CASE EVENT DATE: 20130209
